FAERS Safety Report 22182653 (Version 2)
Quarter: 2023Q2

REPORT INFORMATION
  Report Type: Spontaneous
  Country: BR (occurrence: BR)
  Receive Date: 20230406
  Receipt Date: 20230605
  Transmission Date: 20230722
  Serious: Yes (Other)
  Sender: FDA-Public Use
  Company Number: BR-BAYER-2023A041117

PATIENT
  Age: 28 Year
  Sex: Female
  Weight: 65 kg

DRUGS (1)
  1. KYLEENA [Suspect]
     Active Substance: LEVONORGESTREL
     Dosage: 17.5?G/DAY
     Route: 015
     Dates: start: 20220216, end: 20230324

REACTIONS (10)
  - Ectopic pregnancy with contraceptive device [Recovering/Resolving]
  - Internal haemorrhage [Recovering/Resolving]
  - Genital haemorrhage [Recovering/Resolving]
  - Drug ineffective [None]
  - Nausea [Recovering/Resolving]
  - Vomiting [Recovering/Resolving]
  - Somnolence [Recovering/Resolving]
  - Abdominal pain lower [Recovering/Resolving]
  - Pelvic pain [None]
  - Back pain [Recovering/Resolving]

NARRATIVE: CASE EVENT DATE: 20230316
